FAERS Safety Report 14299669 (Version 1)
Quarter: 2017Q4

REPORT INFORMATION
  Report Type: Spontaneous
  Country: DE (occurrence: DE)
  Receive Date: 20171219
  Receipt Date: 20171219
  Transmission Date: 20180321
  Serious: Yes (Disabling)
  Sender: FDA-Public Use
  Company Number: DE-009507513-1711DEU013029

PATIENT
  Age: 49 Year
  Sex: Female
  Weight: 60 kg

DRUGS (4)
  1. MIRTAZAPINE. [Suspect]
     Active Substance: MIRTAZAPINE
     Indication: DEPRESSION
     Dosage: 7.5 MG, UNK
     Route: 048
     Dates: start: 20171106
  2. MIRTAZAPINE. [Suspect]
     Active Substance: MIRTAZAPINE
     Dosage: 15 MG, UNK
     Route: 048
     Dates: start: 20171120
  3. MIRTAZAPINE. [Suspect]
     Active Substance: MIRTAZAPINE
     Dosage: 30 MG, UNK
     Route: 048
     Dates: start: 20171124
  4. NOVOPULMON [Concomitant]
     Active Substance: BUDESONIDE
     Indication: ASTHMA
     Dosage: 2 BUMPS

REACTIONS (1)
  - Hypogeusia [Not Recovered/Not Resolved]

NARRATIVE: CASE EVENT DATE: 20171124
